FAERS Safety Report 11608051 (Version 1)
Quarter: 2015Q4

REPORT INFORMATION
  Report Type: Spontaneous
  Country: US (occurrence: US)
  Receive Date: 20151007
  Receipt Date: 20151007
  Transmission Date: 20160304
  Serious: No
  Sender: FDA-Public Use
  Company Number: US-PFIZER INC-2015326838

PATIENT
  Age: 39 Year
  Sex: Male

DRUGS (7)
  1. DILANTIN [Suspect]
     Active Substance: PHENYTOIN
     Dosage: UNK
  2. ZONEGRAN [Suspect]
     Active Substance: ZONISAMIDE
     Dosage: UNK
  3. TEGRETOL [Suspect]
     Active Substance: CARBAMAZEPINE
     Dosage: UNK
  4. KEPPRA [Suspect]
     Active Substance: LEVETIRACETAM
     Dosage: UNK
  5. PHENOBARBITAL. [Suspect]
     Active Substance: PHENOBARBITAL
     Dosage: UNK
  6. LAMICTAL [Suspect]
     Active Substance: LAMOTRIGINE
     Dosage: UNK
  7. TRILEPTAL [Suspect]
     Active Substance: OXCARBAZEPINE
     Dosage: UNK

REACTIONS (1)
  - Drug ineffective [Unknown]
